FAERS Safety Report 21172901 (Version 2)
Quarter: 2022Q3

REPORT INFORMATION
  Report Type: Spontaneous
  Country: PL (occurrence: PL)
  Receive Date: 20220804
  Receipt Date: 20220809
  Transmission Date: 20221027
  Serious: Yes (Other)
  Sender: FDA-Public Use
  Company Number: PL-ROCHE-3152315

PATIENT
  Age: 72 Year
  Sex: Male

DRUGS (3)
  1. RITUXIMAB [Suspect]
     Active Substance: RITUXIMAB
     Indication: Chronic lymphocytic leukaemia stage 2
     Dosage: 375 MG/M2, CYCLIC (EACH OF THE SIX CYCLES)
     Route: 065
     Dates: start: 2015
  2. BENDAMUSTINE HYDROCHLORIDE [Suspect]
     Active Substance: BENDAMUSTINE HYDROCHLORIDE
     Indication: Chronic lymphocytic leukaemia stage 2
     Dosage: 70 MG/M2, CYCLIC, EVERY 6 CYCLES FOR 2 DAYS, SAME THERAPY WAS ADMINISTERED IN EACH SIX CYCLES
     Route: 042
     Dates: start: 2015
  3. APIXABAN [Concomitant]
     Active Substance: APIXABAN
     Indication: Haemorrhage prophylaxis
     Route: 065

REACTIONS (4)
  - Chronic lymphocytic leukaemia recurrent [Unknown]
  - Product use issue [Unknown]
  - Atrial fibrillation [Unknown]
  - Off label use [Unknown]

NARRATIVE: CASE EVENT DATE: 20150101
